FAERS Safety Report 15647277 (Version 1)
Quarter: 2018Q4

REPORT INFORMATION
  Report Type: Spontaneous
  Country: FR (occurrence: FR)
  Receive Date: 20181122
  Receipt Date: 20181122
  Transmission Date: 20190205
  Serious: Yes (Other)
  Sender: FDA-Public Use
  Company Number: FR-ACCORD-093476

PATIENT
  Age: 69 Year
  Sex: Female
  Weight: 50 kg

DRUGS (5)
  1. DOXORUBICIN [Suspect]
     Active Substance: DOXORUBICIN
     Indication: NON-HODGKIN^S LYMPHOMA
     Route: 041
     Dates: start: 20180514
  2. VINDESINE/VINDESINE SULFATE [Suspect]
     Active Substance: VINDESINE
     Indication: NON-HODGKIN^S LYMPHOMA
     Route: 041
     Dates: start: 20180514
  3. ETOPOSIDE. [Suspect]
     Active Substance: ETOPOSIDE
     Indication: NON-HODGKIN^S LYMPHOMA
     Route: 041
     Dates: start: 20180514
  4. MABTHERA [Suspect]
     Active Substance: RITUXIMAB
     Indication: NON-HODGKIN^S LYMPHOMA
     Route: 041
     Dates: start: 20180514
  5. CYCLOPHOSPHAMIDE/CYCLOPHOSPHAMIDE MONOHYDRATE [Suspect]
     Active Substance: CYCLOPHOSPHAMIDE
     Indication: NON-HODGKIN^S LYMPHOMA
     Route: 041
     Dates: start: 20180514

REACTIONS (6)
  - Asthenia [Not Recovered/Not Resolved]
  - Alopecia [Not Recovered/Not Resolved]
  - Muscle spasms [Not Recovered/Not Resolved]
  - Diarrhoea [Not Recovered/Not Resolved]
  - Paraesthesia [Not Recovered/Not Resolved]
  - Off label use [Unknown]

NARRATIVE: CASE EVENT DATE: 201805
